FAERS Safety Report 23916530 (Version 1)
Quarter: 2024Q2

REPORT INFORMATION
  Report Type: Spontaneous
  Country: US (occurrence: None)
  Receive Date: 20240528
  Receipt Date: 20240528
  Transmission Date: 20240716
  Serious: Yes (Life-Threatening, Hospitalization)
  Sender: FDA-Public Use
  Company Number: None

PATIENT
  Age: 39 Year
  Sex: Male
  Weight: 69 kg

DRUGS (2)
  1. CLOZAPINE [Suspect]
     Active Substance: CLOZAPINE
     Indication: Schizophrenia
     Dates: start: 20240507, end: 20240518
  2. DEPAKOTE ER [Concomitant]
     Active Substance: DIVALPROEX SODIUM
     Dates: start: 20240502

REACTIONS (6)
  - Pyrexia [None]
  - Tachycardia [None]
  - C-reactive protein increased [None]
  - Troponin increased [None]
  - Ejection fraction decreased [None]
  - Myocarditis [None]

NARRATIVE: CASE EVENT DATE: 20240516
